FAERS Safety Report 7450725-9 (Version None)
Quarter: 2011Q2

REPORT INFORMATION
  Report Type: 
  Country: None (occurrence: None)
  Receive Date: 20110429
  Receipt Date: 20110429
  Transmission Date: 20111010
  Serious: Yes (Hospitalization, Disabling, Other)
  Sender: FDA-Public Use
  Company Number: None

PATIENT
  Age: 48 Year
  Sex: Female
  Weight: 66.6788 kg

DRUGS (1)
  1. PROPOXYPHENE HYDROCHLORIDE W/ ACETAMINOPHEN TAB [Suspect]
     Indication: CHEST PAIN
     Dosage: 20   1 EVERY 6 HOURS
     Dates: start: 20101114

REACTIONS (3)
  - CHEST PAIN [None]
  - PANIC ATTACK [None]
  - ARRHYTHMIA [None]
